FAERS Safety Report 7653565-0 (Version None)
Quarter: 2011Q3

REPORT INFORMATION
  Report Type: 
  Country: None (occurrence: None)
  Receive Date: 20110803
  Receipt Date: 20110728
  Transmission Date: 20111222
  Serious: Yes (Hospitalization)
  Sender: FDA-Public Use
  Company Number: PHHY2011IT67630

PATIENT
  Sex: Female

DRUGS (1)
  1. PACLITAXEL [Suspect]
     Indication: ENDOMETRIAL CANCER STAGE I
     Dosage: 300 MG, UNK
     Route: 042
     Dates: start: 20110706

REACTIONS (3)
  - DYSPNOEA [None]
  - SENSE OF OPPRESSION [None]
  - HOT FLUSH [None]
